FAERS Safety Report 9214964 (Version 4)
Quarter: 2013Q3

REPORT INFORMATION
  Report Type: Report from Study
  Country: AR (occurrence: AR)
  Receive Date: 20130405
  Receipt Date: 20130715
  Transmission Date: 20140515
  Serious: Yes (Hospitalization, Other)
  Sender: FDA-Public Use
  Company Number: AR-ABBOTT-13P-007-1072341-00

PATIENT
  Age: 64 Year
  Sex: Female

DRUGS (1)
  1. HUMIRA [Suspect]
     Indication: RHEUMATOID ARTHRITIS
     Route: 058
     Dates: start: 20121128, end: 20130414

REACTIONS (6)
  - Pulmonary oedema [Not Recovered/Not Resolved]
  - Pneumonia fungal [Recovered/Resolved]
  - Cardiac disorder [Not Recovered/Not Resolved]
  - VIIth nerve paralysis [Recovering/Resolving]
  - Nervousness [Recovering/Resolving]
  - Blood pressure abnormal [Unknown]
